FAERS Safety Report 24674416 (Version 1)
Quarter: 2024Q4

REPORT INFORMATION
  Report Type: Spontaneous
  Country: FR (occurrence: FR)
  Receive Date: 20241128
  Receipt Date: 20241128
  Transmission Date: 20250115
  Serious: Yes (Hospitalization, Other)
  Sender: AUROBINDO
  Company Number: FR-AFSSAPS-TO2024002066

PATIENT
  Age: 90 Year
  Sex: Male

DRUGS (1)
  1. RAMIPRIL [Suspect]
     Active Substance: RAMIPRIL
     Indication: Hypertension
     Dosage: 1 DOSAGE FORM, ONCE A DAY
     Route: 048
     Dates: end: 20240515

REACTIONS (3)
  - Hypokalaemia [Recovered/Resolved]
  - Atrioventricular block first degree [Recovered/Resolved]
  - Bundle branch block [Recovered/Resolved]

NARRATIVE: CASE EVENT DATE: 20240515
